FAERS Safety Report 19005036 (Version 10)
Quarter: 2022Q1

REPORT INFORMATION
  Report Type: Report from Study
  Country: US (occurrence: US)
  Receive Date: 20210312
  Receipt Date: 20220210
  Transmission Date: 20220423
  Serious: Yes (Other)
  Sender: FDA-Public Use
  Company Number: NVSC2021US051840

PATIENT
  Age: 73 Year
  Sex: Female

DRUGS (6)
  1. ENTRESTO [Suspect]
     Active Substance: SACUBITRIL\VALSARTAN
     Indication: Cardiac failure chronic
     Dosage: UNK
     Route: 065
  2. SPIRONOLACTONE [Suspect]
     Active Substance: SPIRONOLACTONE
     Indication: Product used for unknown indication
     Dosage: UNK
     Route: 065
  3. LASIX [Suspect]
     Active Substance: FUROSEMIDE
     Indication: Product used for unknown indication
     Dosage: UNK DF
     Route: 065
  4. COUMADIN [Suspect]
     Active Substance: WARFARIN SODIUM
     Indication: Product used for unknown indication
     Dosage: 0.5 DF
     Route: 065
  5. COUMADIN [Suspect]
     Active Substance: WARFARIN SODIUM
     Dosage: UNK (1-2 PILLS PER DAY)
     Route: 065
  6. LOVENOX [Concomitant]
     Active Substance: ENOXAPARIN SODIUM
     Indication: Product used for unknown indication
     Dosage: UNK
     Route: 065

REACTIONS (28)
  - Cardiac dysfunction [Unknown]
  - Transient ischaemic attack [Unknown]
  - Intracardiac thrombus [Unknown]
  - Pain in extremity [Recovering/Resolving]
  - Contusion [Recovering/Resolving]
  - Depressed mood [Recovered/Resolved]
  - Weight decreased [Unknown]
  - Blood pressure systolic increased [Unknown]
  - Haematoma [Recovered/Resolved]
  - Sensory disturbance [Unknown]
  - Stress [Unknown]
  - Sleep deficit [Recovering/Resolving]
  - Skin discolouration [Unknown]
  - Somnolence [Unknown]
  - Ligament sprain [Unknown]
  - Peripheral swelling [Unknown]
  - Dizziness [Recovered/Resolved]
  - Fatigue [Recovering/Resolving]
  - Weight increased [Unknown]
  - Disturbance in attention [Unknown]
  - Headache [Unknown]
  - Accident [Unknown]
  - Feeling abnormal [Unknown]
  - Hypertension [Recovering/Resolving]
  - Therapeutic response unexpected [Unknown]
  - Wrong technique in product usage process [Recovering/Resolving]
  - Product dose omission issue [Recovered/Resolved]
  - Product dose omission issue [Recovered/Resolved]

NARRATIVE: CASE EVENT DATE: 20210426
